FAERS Safety Report 15346393 (Version 1)
Quarter: 2018Q3

REPORT INFORMATION
  Report Type: Spontaneous
  Country: US (occurrence: US)
  Receive Date: 20180904
  Receipt Date: 20180904
  Transmission Date: 20181010
  Serious: No
  Sender: FDA-Public Use
  Company Number: US-TEVA-2018-US-950187

PATIENT
  Age: 46 Year
  Sex: Female

DRUGS (1)
  1. CLONAZEPAM. [Suspect]
     Active Substance: CLONAZEPAM
     Route: 065

REACTIONS (6)
  - Thinking abnormal [Unknown]
  - Influenza like illness [Unknown]
  - Hot flush [Unknown]
  - Hyperhidrosis [Unknown]
  - Chills [Unknown]
  - Urinary incontinence [Unknown]
